FAERS Safety Report 4688149-X (Version None)
Quarter: 2005Q2

REPORT INFORMATION
  Report Type: 
  Country: None (occurrence: None)
  Receive Date: 20050609
  Receipt Date: 20050526
  Transmission Date: 20051028
  Serious: Yes (Hospitalization)
  Sender: FDA-Public Use
  Company Number: 430015M05USA

PATIENT
  Age: 41 Year
  Sex: Female
  Weight: 90.7194 kg

DRUGS (12)
  1. NOVANTRONE [Suspect]
     Indication: MULTIPLE SCLEROSIS
     Dosage: 25 MG/M2,  3 IN 1 MONTHS
     Dates: start: 20040408, end: 20050208
  2. EFFEXOR [Suspect]
  3. ZANAFLFEX (TIZANIDINE HYDROCHLORIDE) [Suspect]
  4. NEURONTIN [Concomitant]
  5. PROVIGIL [Concomitant]
  6. INDERAL (PROPRANOLOL HYDROCHORIDE) [Concomitant]
  7. CLONAZEPAM [Concomitant]
  8. NAPRILAN (ENALAPRIL) [Concomitant]
  9. AMBIEN (ZOLIPEN (ENALAPRIL) [Concomitant]
  10. IMITREX [Concomitant]
  11. UROCHOLINE (ALL OTHER NON-THERAPEUTIC PRODUCTS) [Concomitant]
  12. TRILEPTAL [Concomitant]

REACTIONS (1)
  - IDIOPATHIC THROMBOCYTOPENIC PURPURA [None]
